FAERS Safety Report 6176624-0 (Version None)
Quarter: 2009Q2

REPORT INFORMATION
  Report Type: 
  Country: None (occurrence: None)
  Receive Date: 20090501
  Receipt Date: 20090429
  Transmission Date: 20091009
  Serious: Yes (Other)
  Sender: FDA-Public Use
  Company Number: US-ASTRAZENECA-2009UW10643

PATIENT
  Age: 68 Year
  Sex: Female
  Weight: 59 kg

DRUGS (4)
  1. CRESTOR [Suspect]
     Route: 048
     Dates: start: 20081201
  2. BONIVA [Suspect]
     Route: 065
  3. VERAPAMIL [Concomitant]
  4. VALSARTAN [Concomitant]

REACTIONS (21)
  - AMNESIA [None]
  - BLOOD CHOLESTEROL INCREASED [None]
  - CHILLS [None]
  - CONTUSION [None]
  - COUGH [None]
  - DIZZINESS [None]
  - FALL [None]
  - FATIGUE [None]
  - FEELING ABNORMAL [None]
  - FEELING COLD [None]
  - FEELING HOT [None]
  - INFECTION [None]
  - INJURY [None]
  - LOSS OF CONSCIOUSNESS [None]
  - MALAISE [None]
  - NODULE [None]
  - OROPHARYNGEAL PAIN [None]
  - PAIN IN EXTREMITY [None]
  - RHINORRHOEA [None]
  - SKIN DISCOLOURATION [None]
  - TONSILLAR DISORDER [None]
